FAERS Safety Report 5197455-4 (Version None)
Quarter: 2006Q4

REPORT INFORMATION
  Report Type: 
  Country: None (occurrence: None)
  Receive Date: 20061228
  Receipt Date: 20061213
  Transmission Date: 20070319
  Serious: Yes (Other)
  Sender: FDA-Public Use
  Company Number: B0451296A

PATIENT
  Age: 53 Year
  Sex: Male
  Weight: 51.8915 kg

DRUGS (6)
  1. ZANTAC [Suspect]
  2. LANSOPRAZOLE [Suspect]
  3. PROPYPHENAZONE (PROPYPHENAZONE) [Suspect]
  4. DROFENINE (DROFENINE) [Suspect]
  5. OXAZEPAM (GENERIC) (OXAZEPAM) [Suspect]
  6. BROMAZEPAM (BROMAZEPAM) [Suspect]

REACTIONS (3)
  - DRUG DEPENDENCE [None]
  - DRUG TOXICITY [None]
  - INCORRECT DOSE ADMINISTERED [None]
